FAERS Safety Report 16755643 (Version 1)
Quarter: 2019Q3

REPORT INFORMATION
  Report Type: Report from Study
  Country: None (occurrence: NL)
  Receive Date: 20190829
  Receipt Date: 20190829
  Transmission Date: 20191005
  Serious: Yes (Other)
  Sender: FDA-Public Use
  Company Number: NL-ABBVIE-19K-114-2905666-00

PATIENT
  Sex: Female

DRUGS (1)
  1. DUODOPA [Suspect]
     Active Substance: CARBIDOPA\LEVODOPA
     Indication: PARKINSON^S DISEASE
     Dosage: MD 2,0 CDD 2,2 CDN 1,3 (SOMETIMES CDN 1,5) ED 1,5
     Route: 050
     Dates: start: 20171017

REACTIONS (2)
  - Pain [Not Recovered/Not Resolved]
  - Breast cancer female [Recovered/Resolved]
